FAERS Safety Report 6287690-6 (Version None)
Quarter: 2009Q3

REPORT INFORMATION
  Report Type: 
  Country: None (occurrence: None)
  Receive Date: 20090727
  Receipt Date: 20090727
  Transmission Date: 20100115
  Serious: Yes (Hospitalization)
  Sender: FDA-Public Use
  Company Number: None

PATIENT
  Age: 50 Year
  Sex: Male
  Weight: 72.7 kg

DRUGS (26)
  1. DOXIL [Suspect]
     Indication: BURKITT'S LYMPHOMA
     Dosage: 76MG, Q 28 DAYS, IV
     Route: 042
     Dates: start: 20090710
  2. CYCLOPHOSPHAMIDE [Suspect]
     Indication: BURKITT'S LYMPHOMA
     Dosage: 1520MG, Q 28DAYS, IV
     Route: 042
     Dates: start: 20090711
  3. RITUXAN [Concomitant]
  4. VINCRISTINE [Concomitant]
  5. CYTARABINE [Concomitant]
  6. CYCLOPHOSPHAMIDE [Concomitant]
  7. METHOTREXATE [Concomitant]
  8. CAPHOSOL MOUTHWASH [Concomitant]
  9. FLUCONAZOLE [Concomitant]
  10. ACYCLOVIR [Concomitant]
  11. WHITE PETROLEUM TOPICAL OINTMENT [Concomitant]
  12. MORPHINE [Concomitant]
  13. STOMATITIS COCKTAIL SUSPENSION [Concomitant]
  14. SENNA-DOCUSATE [Concomitant]
  15. DAPSONE [Concomitant]
  16. FIORICET [Concomitant]
  17. AMBIEN [Concomitant]
  18. PROCHLORPERAZINE [Concomitant]
  19. LORAZEPAM [Concomitant]
  20. FILGRASTIM [Concomitant]
  21. EMTRICITABINE [Concomitant]
  22. TENOFOVIR DISOPROXIL FUMARATE [Concomitant]
  23. RALTEGRAVIR [Concomitant]
  24. HEPARIN [Concomitant]
  25. ALLOPURINOL [Concomitant]
  26. PANTOPRAZOLE SODIUM [Concomitant]

REACTIONS (1)
  - FEBRILE NEUTROPENIA [None]
